FAERS Safety Report 18758852 (Version 1)
Quarter: 2021Q1

REPORT INFORMATION
  Report Type: Spontaneous
  Country: NL (occurrence: NL)
  Receive Date: 20210119
  Receipt Date: 20210119
  Transmission Date: 20210419
  Serious: Yes (Hospitalization)
  Sender: FDA-Public Use
  Company Number: NVSC2021NL009639

PATIENT
  Age: 71 Year
  Sex: Male
  Weight: 82 kg

DRUGS (3)
  1. CLARITHROMYCIN. [Suspect]
     Active Substance: CLARITHROMYCIN
     Indication: MALAISE
     Dosage: 500 MG (TABLET MET GEREGULEERDE AFGIFTE, 500 MG (MILLIGRAM)
     Route: 065
     Dates: start: 20201221, end: 20201226
  2. CLARITHROMYCIN. [Suspect]
     Active Substance: CLARITHROMYCIN
     Indication: CARDIAC DISORDER
  3. PREDNISOLON [Concomitant]
     Active Substance: PREDNISOLONE
     Indication: PRODUCT USED FOR UNKNOWN INDICATION
     Dosage: TABLET, 30 MG (MILLIGRAM)
     Route: 065

REACTIONS (2)
  - Epilepsy [Recovering/Resolving]
  - Loss of consciousness [Recovering/Resolving]

NARRATIVE: CASE EVENT DATE: 20201226
